FAERS Safety Report 5195989-X (Version None)
Quarter: 2006Q4

REPORT INFORMATION
  Report Type: 
  Country: None (occurrence: None)
  Receive Date: 20061227
  Receipt Date: 20061214
  Transmission Date: 20070319
  Serious: Yes (Hospitalization)
  Sender: FDA-Public Use
  Company Number: 430009N06FRA

PATIENT
  Age: 41 Year
  Sex: Female

DRUGS (5)
  1. NOVANTRONE [Suspect]
     Dosage: 18 MG, 1 IN 1 CYCLE, INTRAVENOUS
     Route: 042
     Dates: start: 20060607, end: 20061031
  2. NOVANTRONE [Suspect]
     Dosage: 18 MG, 1 IN 1 CYCLE, INTRAVENOUS
     Route: 042
     Dates: start: 20061130
  3. METHYLPREDNISOLONE SODIUM SUCCINATE [Concomitant]
  4. BROMAZEPAM [Concomitant]
  5. VENLAFAXINE HYDROCHLORIDE [Concomitant]

REACTIONS (4)
  - C-REACTIVE PROTEIN INCREASED [None]
  - FEBRILE NEUTROPENIA [None]
  - LEUKOPENIA [None]
  - THROMBOCYTOPENIA [None]
